FAERS Safety Report 6607557-0 (Version None)
Quarter: 2010Q1

REPORT INFORMATION
  Report Type: 
  Country: None (occurrence: None)
  Receive Date: 20100301
  Receipt Date: 20100301
  Transmission Date: 20100710
  Serious: Yes (Hospitalization)
  Sender: FDA-Public Use
  Company Number: PHHO2006AU16861

PATIENT
  Sex: Female
  Weight: 47 kg

DRUGS (3)
  1. ZOLEDRONIC ACID [Suspect]
     Indication: OSTEOPOROSIS POSTMENOPAUSAL
     Dosage: UNK
     Route: 042
     Dates: start: 20051107
  2. CALCIUM [Concomitant]
     Indication: OSTEOPOROSIS POSTMENOPAUSAL
  3. VITAMIN D [Concomitant]
     Indication: OSTEOPOROSIS POSTMENOPAUSAL

REACTIONS (6)
  - CONCOMITANT DISEASE PROGRESSION [None]
  - ENDOPHTHALMITIS [None]
  - EYE INFLAMMATION [None]
  - INTRAOCULAR PRESSURE INCREASED [None]
  - SYMPATHETIC OPHTHALMIA [None]
  - UVEITIS [None]
